FAERS Safety Report 8051217-9 (Version None)
Quarter: 2012Q1

REPORT INFORMATION
  Report Type: 
  Country: None (occurrence: None)
  Receive Date: 20120117
  Receipt Date: 20120110
  Transmission Date: 20120608
  Serious: Yes (Other)
  Sender: FDA-Public Use
  Company Number: CA-BAYER-2012-002960

PATIENT

DRUGS (1)
  1. MIDOL NIGHT TIME [Suspect]
     Dosage: UNK

REACTIONS (1)
  - ANAPHYLACTIC SHOCK [None]
